FAERS Safety Report 25435645 (Version 3)
Quarter: 2025Q2

REPORT INFORMATION
  Report Type: Spontaneous
  Country: CH (occurrence: CH)
  Receive Date: 20250613
  Receipt Date: 20250620
  Transmission Date: 20250717
  Serious: Yes (Death, Hospitalization)
  Sender: PFIZER
  Company Number: None

PATIENT
  Age: 75 Year
  Sex: Female

DRUGS (11)
  1. ALDACTONE [Suspect]
     Active Substance: SPIRONOLACTONE
     Indication: Hepatic cirrhosis
     Dosage: 100 MG, 1X/DAY (SEPARATED DOSES)
     Route: 048
     Dates: end: 20250331
  2. CARVEDILOL [Suspect]
     Active Substance: CARVEDILOL
     Indication: Hepatic cirrhosis
     Dosage: 6.25 MG, 2X/DAY (SEPARATED DOSES)
     Route: 048
     Dates: end: 20250331
  3. AMOXICILLIN SODIUM [Suspect]
     Active Substance: AMOXICILLIN SODIUM
     Indication: Listeriosis
     Dosage: 2000 MG, EVERY 4 HRS (SEPARATED DOSES)
     Route: 042
     Dates: start: 20250324, end: 20250414
  4. PANTOPRAZOLE SODIUM [Suspect]
     Active Substance: PANTOPRAZOLE SODIUM
     Dosage: 40 MG, 1X/DAY
     Route: 042
     Dates: start: 20250322, end: 20250411
  5. PANTOPRAZOLE SODIUM [Suspect]
     Active Substance: PANTOPRAZOLE SODIUM
     Route: 048
     Dates: end: 20250321
  6. LASIX [Suspect]
     Active Substance: FUROSEMIDE
     Dosage: 40 MG, 1X/DAY
     Route: 042
     Dates: start: 20250329, end: 20250329
  7. LASIX [Suspect]
     Active Substance: FUROSEMIDE
     Dosage: 120 MG (40MG + 80MG), 1X/DAY
     Route: 042
     Dates: start: 20250330, end: 20250330
  8. GENTAMICIN SULFATE [Suspect]
     Active Substance: GENTAMICIN SULFATE
     Indication: Listeriosis
     Dosage: 160 MG, 1X/DAY (SEPARATED DOSES)
     Route: 042
     Dates: start: 20250324, end: 20250331
  9. FRAGMIN [Concomitant]
     Active Substance: DALTEPARIN SODIUM
     Indication: Thrombosis prophylaxis
     Dosage: 5000 IU, 1X/DAY
     Route: 058
     Dates: start: 20250322, end: 20250408
  10. FRAGMIN [Concomitant]
     Active Substance: DALTEPARIN SODIUM
     Dosage: 2500 IU, 1X/DAY
     Route: 058
     Dates: start: 20250331, end: 20250408
  11. THIAMINE HYDROCHLORIDE [Concomitant]
     Active Substance: THIAMINE HYDROCHLORIDE
     Dosage: 300 MG, 1X/DAY (SEPARATED DOSES)
     Route: 048
     Dates: start: 20250321, end: 20250416

REACTIONS (3)
  - Acute kidney injury [Not Recovered/Not Resolved]
  - Tubulointerstitial nephritis [Not Recovered/Not Resolved]
  - Death [Fatal]

NARRATIVE: CASE EVENT DATE: 20250331
